FAERS Safety Report 8447702-8 (Version None)
Quarter: 2012Q2

REPORT INFORMATION
  Report Type: 
  Country: None (occurrence: None)
  Receive Date: 20120619
  Receipt Date: 20120612
  Transmission Date: 20120825
  Serious: Yes (Other)
  Sender: FDA-Public Use
  Company Number: JP-PFIZER INC-2012141533

PATIENT
  Age: 38 Year
  Sex: Female

DRUGS (2)
  1. LYRICA [Suspect]
     Dosage: 75 MG, 1X/DAY
     Route: 048
  2. LYRICA [Suspect]
     Dosage: 150 MG, 1X/DAY
     Route: 048

REACTIONS (5)
  - SHOCK [None]
  - CONVULSION [None]
  - LOSS OF CONSCIOUSNESS [None]
  - NAUSEA [None]
  - BLOOD PRESSURE DECREASED [None]
